FAERS Safety Report 9160663 (Version 1)
Quarter: 2013Q1

REPORT INFORMATION
  Report Type: Spontaneous
  Country: JP (occurrence: JP)
  Receive Date: 20130313
  Receipt Date: 20130313
  Transmission Date: 20140127
  Serious: Yes (Other)
  Sender: FDA-Public Use
  Company Number: JP-BAYER-2013-029661

PATIENT
  Sex: Male

DRUGS (4)
  1. BAYASPIRIN [Suspect]
     Route: 048
  2. PLETAAL [Concomitant]
     Route: 048
  3. BUFFERIN [Concomitant]
     Dosage: UNK
     Route: 048
  4. MICARDIS [Concomitant]
     Route: 048

REACTIONS (1)
  - Dyspnoea [None]
